FAERS Safety Report 8242928-0 (Version None)
Quarter: 2012Q1

REPORT INFORMATION
  Report Type: 
  Country: None (occurrence: None)
  Receive Date: 20120329
  Receipt Date: 20120329
  Transmission Date: 20120608
  Serious: Yes (Hospitalization)
  Sender: FDA-Public Use
  Company Number: None

PATIENT
  Age: 63 Year
  Sex: Male
  Weight: 78.471 kg

DRUGS (1)
  1. DAPTOMYCIN [Suspect]
     Indication: POST PROCEDURAL INFECTION
     Dosage: 500MG
     Route: 042
     Dates: start: 20120227, end: 20120319

REACTIONS (2)
  - EOSINOPHILIC PNEUMONIA [None]
  - LUNG CONSOLIDATION [None]
